FAERS Safety Report 18693135 (Version 1)
Quarter: 2021Q1

REPORT INFORMATION
  Report Type: Other
  Country: CA (occurrence: CA)
  Receive Date: 20210104
  Receipt Date: 20210104
  Transmission Date: 20210419
  Serious: Yes (Hospitalization, Other)
  Sender: FDA-Public Use
  Company Number: CA-ROCHE-696865

PATIENT
  Age: 25 Year
  Sex: Female
  Weight: 61 kg

DRUGS (10)
  1. RITUXAN [Suspect]
     Active Substance: RITUXIMAB
     Route: 042
     Dates: start: 2006, end: 2012
  2. RITUXAN [Suspect]
     Active Substance: RITUXIMAB
     Route: 042
     Dates: start: 20201216
  3. PREDNISONE. [Concomitant]
     Active Substance: PREDNISONE
     Route: 048
     Dates: start: 2006
  4. RITUXAN [Suspect]
     Active Substance: RITUXIMAB
     Indication: IMMUNE THROMBOCYTOPENIA
     Route: 042
     Dates: start: 20100401, end: 20100419
  5. COZAAR [Concomitant]
     Active Substance: LOSARTAN POTASSIUM
     Route: 048
  6. CALCIUM [Concomitant]
     Active Substance: CALCIUM
     Route: 048
  7. IRON [Concomitant]
     Active Substance: IRON
     Route: 048
  8. RITUXAN [Suspect]
     Active Substance: RITUXIMAB
     Indication: SYSTEMIC LUPUS ERYTHEMATOSUS
     Dosage: FORM:INFUSION
     Route: 042
     Dates: start: 200801, end: 2008
  9. IMURAN [Concomitant]
     Active Substance: AZATHIOPRINE
     Route: 048
     Dates: start: 200803
  10. PLAQUENIL [Concomitant]
     Active Substance: HYDROXYCHLOROQUINE SULFATE
     Route: 048
     Dates: start: 200808

REACTIONS (15)
  - Urticaria [Recovered/Resolved]
  - Vomiting [Recovered/Resolved]
  - Pharyngeal swelling [Recovered/Resolved]
  - Chest pain [Recovered/Resolved]
  - Nausea [Recovered/Resolved]
  - Chest pain [Recovered/Resolved]
  - Pharyngeal swelling [Recovering/Resolving]
  - Diarrhoea [Recovered/Resolved]
  - Urticaria [Recovering/Resolving]
  - Muscle tightness [Recovering/Resolving]
  - Pain [Recovering/Resolving]
  - Painful respiration [Recovered/Resolved]
  - Seizure [Recovering/Resolving]
  - Therapy naive [Recovered/Resolved]
  - Dysphagia [Recovering/Resolving]

NARRATIVE: CASE EVENT DATE: 2008
